FAERS Safety Report 14684162 (Version 2)
Quarter: 2018Q2

REPORT INFORMATION
  Report Type: Other
  Country: FR (occurrence: FR)
  Receive Date: 20180327
  Receipt Date: 20180409
  Transmission Date: 20180711
  Serious: Yes (Other)
  Sender: FDA-Public Use
  Company Number: FR-MACLEODS PHARMACEUTICALS US LTD-MAC2018009505

PATIENT

DRUGS (13)
  1. LOVENOX [Suspect]
     Active Substance: ENOXAPARIN SODIUM
     Indication: PRODUCT USED FOR UNKNOWN INDICATION
     Dosage: UNK
     Route: 065
  2. ACTISKENAN [Suspect]
     Active Substance: MORPHINE SULFATE
     Dosage: 10 MG, UNK, CAPSULE
     Route: 048
  3. LEVOCARNIL [Suspect]
     Active Substance: LEVOCARNITINE
     Indication: PRODUCT USED FOR UNKNOWN INDICATION
     Dosage: UNK
     Route: 048
     Dates: start: 20170112
  4. LEVOFLOXACIN. [Suspect]
     Active Substance: LEVOFLOXACIN
     Indication: ANTIBIOTIC PROPHYLAXIS
     Dosage: 1 DF, UNK,
     Route: 048
     Dates: start: 20170112, end: 20170113
  5. ACUPAN [Suspect]
     Active Substance: NEFOPAM HYDROCHLORIDE
     Indication: PRODUCT USED FOR UNKNOWN INDICATION
     Dosage: 80 MG, UNK, SOLUTION INJECTABLE
     Route: 065
  6. ACUPAN [Suspect]
     Active Substance: NEFOPAM HYDROCHLORIDE
     Dosage: 20 MG, UNK
     Route: 065
  7. PARACETAMOL [Suspect]
     Active Substance: ACETAMINOPHEN
     Indication: PRODUCT USED FOR UNKNOWN INDICATION
     Dosage: 4 G, UNK (INJECTION)
     Route: 042
  8. COLCHICINE OPOCALCIUM [Suspect]
     Active Substance: COLCHICINE
     Indication: BEHCET^S SYNDROME
     Dosage: 1 MG, UNK
     Route: 048
     Dates: start: 20170112, end: 20170113
  9. PARACETAMOL [Suspect]
     Active Substance: ACETAMINOPHEN
     Dosage: 1 G, UNK
     Route: 042
     Dates: end: 20170111
  10. ACTISKENAN [Suspect]
     Active Substance: MORPHINE SULFATE
     Indication: PRODUCT USED FOR UNKNOWN INDICATION
     Dosage: 60 MG, UNK,
     Route: 048
  11. ACTISKENAN [Suspect]
     Active Substance: MORPHINE SULFATE
     Dosage: 10 MG, UNK
     Route: 048
  12. INEXIUM [Suspect]
     Active Substance: ESOMEPRAZOLE
     Indication: PRODUCT USED FOR UNKNOWN INDICATION
     Dosage: 1 DF, UNK, (40 MG, GASTRO-RESISTANT TABLET)
     Route: 048
  13. PYOSTACINE [Suspect]
     Active Substance: PRISTINAMYCIN
     Indication: PRODUCT USED FOR UNKNOWN INDICATION
     Dosage: 3 G, UNK
     Route: 048
     Dates: end: 20170111

REACTIONS (6)
  - Blood bilirubin increased [Recovered/Resolved]
  - Gamma-glutamyltransferase increased [Recovered/Resolved]
  - Hepatocellular injury [Recovered/Resolved]
  - Cholestasis [Recovered/Resolved]
  - Transaminases increased [Recovered/Resolved]
  - Blood alkaline phosphatase increased [Recovered/Resolved]

NARRATIVE: CASE EVENT DATE: 20170113
